FAERS Safety Report 4377110-0 (Version None)
Quarter: 2004Q2

REPORT INFORMATION
  Report Type: 
  Country: None (occurrence: None)
  Receive Date: 20040608
  Receipt Date: 20040601
  Transmission Date: 20050107
  Serious: Yes (Hospitalization)
  Sender: FDA-Public Use
  Company Number: A06200400152

PATIENT
  Age: 82 Year
  Sex: Female

DRUGS (2)
  1. FASTURTEC - (RASBURICASE) - POWDER - 7.5 MG [Suspect]
     Indication: HYPERURICAEMIA
     Dosage: 7.5 MG ONCE; INTRAVENOUS DRIP; 1 DAY TO ONSET: A FEW HOURS
     Route: 041
     Dates: start: 20040420, end: 20040420
  2. FASTURTEC - (RASBURICASE) - POWDER - 7.5 MG [Suspect]
     Indication: PROPHYLAXIS
     Dosage: 7.5 MG ONCE; INTRAVENOUS DRIP; 1 DAY TO ONSET: A FEW HOURS
     Route: 041
     Dates: start: 20040420, end: 20040420

REACTIONS (4)
  - ANXIETY [None]
  - PAIN [None]
  - PARAESTHESIA [None]
  - SWOLLEN TONGUE [None]
